FAERS Safety Report 10488575 (Version 1)
Quarter: 2014Q4

REPORT INFORMATION
  Report Type: Spontaneous
  Country: US (occurrence: None)
  Receive Date: 20141001
  Receipt Date: 20141001
  Transmission Date: 20150528
  Serious: Yes (Disabling)
  Sender: FDA-Public Use
  Company Number: None

PATIENT
  Age: 67 Year
  Sex: Female
  Weight: 54.89 kg

DRUGS (1)
  1. PROLIA [Suspect]
     Active Substance: DENOSUMAB
     Indication: OSTEOPOROSIS
     Dosage: 2 TIMES A YEAR
     Dates: start: 20140114

REACTIONS (4)
  - Back pain [None]
  - Arthralgia [None]
  - Gait disturbance [None]
  - Movement disorder [None]

NARRATIVE: CASE EVENT DATE: 20140115
